FAERS Safety Report 5464980-8 (Version None)
Quarter: 2007Q3

REPORT INFORMATION
  Report Type: 
  Country: None (occurrence: None)
  Receive Date: 20070921
  Receipt Date: 20070910
  Transmission Date: 20080115
  Serious: Yes (Other)
  Sender: FDA-Public Use
  Company Number: US-PFIZER INC-2007077647

PATIENT
  Sex: Female

DRUGS (2)
  1. CHANTIX [Suspect]
     Indication: EX-SMOKER
  2. REPLENS [Suspect]
     Indication: VULVOVAGINAL DRYNESS

REACTIONS (5)
  - PILOERECTION [None]
  - PYREXIA [None]
  - VAGINAL DISCHARGE [None]
  - VULVOVAGINAL DRYNESS [None]
  - WEIGHT INCREASED [None]
